FAERS Safety Report 5086505-1 (Version None)
Quarter: 2006Q3

REPORT INFORMATION
  Report Type: 
  Country: None (occurrence: None)
  Receive Date: 20060818
  Receipt Date: 20060807
  Transmission Date: 20061208
  Serious: Yes (Other)
  Sender: FDA-Public Use
  Company Number: PHNR2006AU01020

PATIENT
  Age: 10 Year

DRUGS (1)
  1. LAMISIL [Suspect]
     Indication: DRUG USE FOR UNKNOWN INDICATION
     Dosage: 7.5 MG, APPLIED ONCE, TOPICAL
     Route: 061

REACTIONS (1)
  - INTENTIONAL DRUG MISUSE [None]
